FAERS Safety Report 9372848 (Version 1)
Quarter: 2013Q2

REPORT INFORMATION
  Report Type: Report from Study
  Country: US (occurrence: US)
  Receive Date: 20130627
  Receipt Date: 20130627
  Transmission Date: 20140414
  Serious: Yes (Other)
  Sender: FDA-Public Use
  Company Number: PHEH2013US005780

PATIENT
  Age: 43 Year
  Sex: Female

DRUGS (1)
  1. GILENYA [Suspect]
     Indication: MULTIPLE SCLEROSIS
     Dosage: 0.5 MG, QD
     Route: 048
     Dates: start: 20130307

REACTIONS (7)
  - Psychotic disorder [Unknown]
  - Amnesia [Unknown]
  - Ocular hyperaemia [Unknown]
  - Swelling face [Unknown]
  - Nervousness [Recovered/Resolved]
  - Dizziness [Recovered/Resolved]
  - Vision blurred [Unknown]
